FAERS Safety Report 24773346 (Version 1)
Quarter: 2024Q4

REPORT INFORMATION
  Report Type: Spontaneous
  Country: MX (occurrence: MX)
  Receive Date: 20241225
  Receipt Date: 20241225
  Transmission Date: 20250115
  Serious: Yes (Hospitalization)
  Sender: NOVARTIS
  Company Number: MX-002147023-NVSC2024MX242605

PATIENT
  Age: 36 Year
  Sex: Male

DRUGS (3)
  1. OCTREOTIDE [Suspect]
     Active Substance: OCTREOTIDE
     Indication: Chylothorax
     Dosage: 600?G
     Route: 065
  2. OCTREOTIDE [Suspect]
     Active Substance: OCTREOTIDE
  3. OCTREOTIDE [Suspect]
     Active Substance: OCTREOTIDE

REACTIONS (7)
  - Purulent discharge [Unknown]
  - Drug ineffective [Unknown]
  - Pleural effusion [Recovering/Resolving]
  - Chylothorax [Unknown]
  - Seroma [Unknown]
  - Acinetobacter infection [Recovered/Resolved]
  - Off label use [Unknown]
